FAERS Safety Report 26048909 (Version 1)
Quarter: 2025Q4

REPORT INFORMATION
  Report Type: Spontaneous
  Country: US (occurrence: US)
  Receive Date: 20251115
  Receipt Date: 20251115
  Transmission Date: 20260118
  Serious: Yes (Other)
  Sender: ALEXION PHARMACEUTICALS
  Company Number: US-AstraZeneca-CH-00991977AP

PATIENT
  Sex: Female

DRUGS (1)
  1. BREZTRI [Suspect]
     Active Substance: BUDESONIDE\FORMOTEROL\GLYCOPYRROLATE
     Dosage: UNK
     Route: 065

REACTIONS (8)
  - Oxygen consumption [Not Recovered/Not Resolved]
  - Dyspnoea [Unknown]
  - Cataract [Unknown]
  - Device defective [Unknown]
  - Wrong technique in product usage process [Unknown]
  - Headache [Unknown]
  - Emphysema [Unknown]
  - Incorrect dose administered by device [Unknown]
